FAERS Safety Report 5982185-9 (Version None)
Quarter: 2008Q4

REPORT INFORMATION
  Report Type: 
  Country: None (occurrence: None)
  Receive Date: 20081208
  Receipt Date: 20081203
  Transmission Date: 20090506
  Serious: Yes (Death)
  Sender: FDA-Public Use
  Company Number: A0759381A

PATIENT
  Age: 58 Year
  Sex: Female
  Weight: 45 kg

DRUGS (1)
  1. SERETIDE [Suspect]
     Indication: CHRONIC OBSTRUCTIVE PULMONARY DISEASE
     Route: 065
     Dates: start: 20050101

REACTIONS (1)
  - CARDIAC FAILURE [None]
